FAERS Safety Report 24928849 (Version 1)
Quarter: 2025Q1

REPORT INFORMATION
  Report Type: Spontaneous
  Country: DE (occurrence: DE)
  Receive Date: 20250205
  Receipt Date: 20250205
  Transmission Date: 20250409
  Serious: Yes (Hospitalization)
  Sender: SANDOZ
  Company Number: DE-ROCHE-10000162550

PATIENT
  Age: 67 Year
  Sex: Male
  Weight: 78 kg

DRUGS (43)
  1. CYCLOPHOSPHAMIDE [Suspect]
     Active Substance: CYCLOPHOSPHAMIDE
     Indication: Diffuse large B-cell lymphoma
     Dosage: MOST RECENT DOSE OF STUDY DRUG PRIOR TO SAE/AE: 09-DEC-2024, 1492.50 MG
     Route: 042
     Dates: start: 20240910
  2. DOXORUBICIN [Suspect]
     Active Substance: DOXORUBICIN
     Indication: Diffuse large B-cell lymphoma
     Dosage: MOST RECENT DOSE OF STUDY DRUG PRIOR TO SAE/AE: 13-DEC-2024, 99.50 MG
     Route: 042
     Dates: start: 20240910
  3. GLOFITAMAB [Suspect]
     Active Substance: GLOFITAMAB
     Indication: Diffuse large B-cell lymphoma
     Dosage: MOST RECENT DOSE OF STUDY DRUG PRIOR TO SAE/AE: 16-DEC-2024, 30 MG
     Route: 042
     Dates: start: 20241008
  4. PREDNISOLONE [Suspect]
     Active Substance: PREDNISOLONE
     Indication: Diffuse large B-cell lymphoma
     Dosage: MOST RECENT DOSE OF STUDY DRUG PRIOR TO SAE/AE: 13-DEC-2024, 100 MG
     Route: 048
     Dates: start: 20240910
  5. POLATUZUMAB VEDOTIN [Suspect]
     Active Substance: POLATUZUMAB VEDOTIN
     Indication: Diffuse large B-cell lymphoma
     Dosage: MOST RECENT DOSE OF STUDY DRUG PRIOR TO SAE/AE: 10-DEC-2024, 142.20 MG
     Route: 042
     Dates: start: 20240911
  6. RITUXIMAB [Suspect]
     Active Substance: RITUXIMAB
     Indication: Diffuse large B-cell lymphoma
     Dosage: MOST RECENT DOSE OF STUDY DRUG PRIOR TO SAE/AE: 09-DEC-2024, 746.25 MG
     Route: 042
     Dates: start: 20240910
  7. ACYCLOVIR [Concomitant]
     Active Substance: ACYCLOVIR
     Indication: Product used for unknown indication
     Dosage: GIVEN FOR PROPHYLAXIS IS YES
     Route: 048
     Dates: start: 20240909
  8. ALLOPURINOL [Concomitant]
     Active Substance: ALLOPURINOL
     Indication: Product used for unknown indication
     Dosage: GIVEN FOR PROPHYLAXIS IS YES
     Route: 048
     Dates: start: 20240910
  9. APREPITANT [Concomitant]
     Active Substance: APREPITANT
     Dosage: GIVEN FOR PROPHYLAXIS IS YES
     Route: 048
     Dates: start: 20241209, end: 20241209
  10. APREPITANT [Concomitant]
     Active Substance: APREPITANT
     Indication: Product used for unknown indication
     Dosage: GIVEN FOR PROPHYLAXIS IS YES
     Route: 048
     Dates: start: 20241210, end: 20241211
  11. CLEMASTINE [Concomitant]
     Active Substance: CLEMASTINE
     Dosage: GIVEN FOR PROPHYLAXIS IS YES
     Route: 042
     Dates: start: 20241209, end: 20241210
  12. CLEMASTINE [Concomitant]
     Active Substance: CLEMASTINE
     Indication: Product used for unknown indication
     Route: 042
     Dates: start: 20241203, end: 20241203
  13. CLEMASTINE [Concomitant]
     Active Substance: CLEMASTINE
     Route: 042
     Dates: start: 20241216, end: 20241216
  14. CODEINE [Concomitant]
     Active Substance: CODEINE
     Indication: Cough
     Route: 065
     Dates: start: 20241124, end: 20241124
  15. CODEINE [Concomitant]
     Active Substance: CODEINE
     Route: 065
     Dates: start: 20241124, end: 20241124
  16. DEXAMETHASONE [Concomitant]
     Active Substance: DEXAMETHASONE
     Route: 048
     Dates: start: 20241130, end: 20241202
  17. DEXAMETHASONE [Concomitant]
     Active Substance: DEXAMETHASONE
     Indication: Immune effector cell-associated neurotoxicity syndrome
     Route: 042
     Dates: start: 20241121, end: 20241122
  18. DEXAMETHASONE [Concomitant]
     Active Substance: DEXAMETHASONE
     Route: 042
     Dates: start: 20241123, end: 20241125
  19. DEXAMETHASONE [Concomitant]
     Active Substance: DEXAMETHASONE
     Route: 042
     Dates: start: 20241203, end: 20241203
  20. DEXAMETHASONE [Concomitant]
     Active Substance: DEXAMETHASONE
     Route: 042
     Dates: start: 20241216, end: 20241216
  21. DEXAMETHASONE [Concomitant]
     Active Substance: DEXAMETHASONE
     Route: 048
     Dates: start: 20241126, end: 20241126
  22. DEXAMETHASONE [Concomitant]
     Active Substance: DEXAMETHASONE
     Route: 048
     Dates: start: 20241127, end: 20241129
  23. GRANISETRON [Concomitant]
     Active Substance: GRANISETRON
     Indication: Product used for unknown indication
     Route: 042
     Dates: start: 20241209, end: 20241209
  24. POTASSIUM CHLORIDE [Concomitant]
     Active Substance: POTASSIUM CHLORIDE
     Indication: Hypokalaemia
     Route: 048
     Dates: start: 20241125, end: 20241125
  25. MAGALDRATE [Concomitant]
     Active Substance: MAGALDRATE
     Indication: Dyspepsia
     Route: 048
     Dates: start: 20241124, end: 20241124
  26. METAMIZOL [Concomitant]
     Active Substance: METAMIZOLE SODIUM
     Indication: Pyrexia
     Route: 042
     Dates: start: 20241121, end: 20241128
  27. METAMIZOL [Concomitant]
     Active Substance: METAMIZOLE SODIUM
     Indication: Pain
     Route: 048
     Dates: start: 20240909
  28. ACETAMINOPHEN [Concomitant]
     Active Substance: ACETAMINOPHEN
     Dosage: GIVEN FOR PROPHYLAXIS IS YES
     Route: 048
     Dates: start: 20241209, end: 20241210
  29. ACETAMINOPHEN [Concomitant]
     Active Substance: ACETAMINOPHEN
     Indication: Product used for unknown indication
     Route: 048
     Dates: start: 20241203, end: 20241203
  30. ACETAMINOPHEN [Concomitant]
     Active Substance: ACETAMINOPHEN
     Route: 048
     Dates: start: 20241217, end: 20241223
  31. ACETAMINOPHEN [Concomitant]
     Active Substance: ACETAMINOPHEN
     Route: 048
     Dates: start: 20241216, end: 20241216
  32. PEGFILGRASTIM [Concomitant]
     Active Substance: PEGFILGRASTIM
     Indication: Product used for unknown indication
     Dosage: GIVEN FOR PROPHYLAXIS IS YES
     Route: 058
  33. PIPERACILLIN SODIUM\TAZOBACTAM SODIUM [Concomitant]
     Active Substance: PIPERACILLIN SODIUM\TAZOBACTAM SODIUM
     Route: 042
     Dates: start: 20241121, end: 20241128
  34. PIPERACILLIN SODIUM\TAZOBACTAM SODIUM [Concomitant]
     Active Substance: PIPERACILLIN SODIUM\TAZOBACTAM SODIUM
     Indication: Product used for unknown indication
     Route: 042
     Dates: start: 20241121
  35. PIPERACILLIN SODIUM\TAZOBACTAM SODIUM [Concomitant]
     Active Substance: PIPERACILLIN SODIUM\TAZOBACTAM SODIUM
     Route: 042
     Dates: start: 20241217, end: 20241223
  36. REMDESIVIR [Concomitant]
     Active Substance: REMDESIVIR
     Indication: Product used for unknown indication
     Route: 048
     Dates: start: 20241204
  37. SULFAMETHOXAZOLE\TRIMETHOPRIM [Concomitant]
     Active Substance: SULFAMETHOXAZOLE\TRIMETHOPRIM
     Indication: Product used for unknown indication
     Route: 048
     Dates: start: 20241204
  38. TAMSULOSIN [Concomitant]
     Active Substance: TAMSULOSIN
     Indication: Benign prostatic hyperplasia
     Dosage: 0.400MG QD
     Route: 048
     Dates: end: 20241203
  39. TINZAPARIN [Concomitant]
     Active Substance: TINZAPARIN
     Indication: Product used for unknown indication
     Dosage: GIVEN FOR PROPHYLAXIS IS YES
     Route: 058
     Dates: start: 20241121
  40. TINZAPARIN [Concomitant]
     Active Substance: TINZAPARIN
     Dosage: GIVEN FOR PROPHYLAXIS IS YES
     Route: 058
     Dates: start: 20241219, end: 20241222
  41. VEKLURY [Concomitant]
     Active Substance: REMDESIVIR
     Indication: COVID-19
     Dosage: 100.000MG QD
     Route: 065
  42. VEKLURY [Concomitant]
     Active Substance: REMDESIVIR
     Route: 042
     Dates: start: 20241127, end: 20241128
  43. VEKLURY [Concomitant]
     Active Substance: REMDESIVIR
     Route: 042
     Dates: start: 20241126, end: 20241126

REACTIONS (2)
  - Febrile neutropenia [Recovered/Resolved]
  - Cytokine release syndrome [Recovered/Resolved]

NARRATIVE: CASE EVENT DATE: 20241217
